FAERS Safety Report 22607034 (Version 1)
Quarter: 2023Q2

REPORT INFORMATION
  Report Type: Spontaneous
  Country: MX (occurrence: MX)
  Receive Date: 20230615
  Receipt Date: 20230615
  Transmission Date: 20230722
  Serious: Yes (Hospitalization)
  Sender: FDA-Public Use
  Company Number: MX-BAUSCH-BL-2023-008930

PATIENT
  Sex: Male

DRUGS (2)
  1. RIFAXIMIN [Suspect]
     Active Substance: RIFAXIMIN
     Indication: Diarrhoea
     Route: 048
     Dates: start: 20230515
  2. RIFAXIMIN [Suspect]
     Active Substance: RIFAXIMIN
     Indication: Intentional product use issue

REACTIONS (2)
  - Ileus paralytic [Unknown]
  - Intentional product use issue [Unknown]

NARRATIVE: CASE EVENT DATE: 20230515
